FAERS Safety Report 4477025-3 (Version None)
Quarter: 2004Q4

REPORT INFORMATION
  Report Type: 
  Country: None (occurrence: None)
  Receive Date: 20041013
  Receipt Date: 20040927
  Transmission Date: 20050328
  Serious: Yes (Death, Hospitalization)
  Sender: FDA-Public Use
  Company Number: GBS040915661

PATIENT
  Age: 18 Year
  Sex: Female
  Weight: 50 kg

DRUGS (9)
  1. XIGRIS [Suspect]
     Indication: SEPSIS
     Dosage: 2.4 MG/HR
     Dates: start: 20040911, end: 20040915
  2. NORADRENALINE [Concomitant]
  3. CEFUROXIME [Concomitant]
  4. METRONIDAZOLE [Concomitant]
  5. AMPICILLIN [Concomitant]
  6. CIPROFLOXACIN [Concomitant]
  7. MIDAZOLAM HCL [Concomitant]
  8. AMIODARONE [Concomitant]
  9. SALBUTAMOL [Concomitant]

REACTIONS (1)
  - ISCHAEMIC STROKE [None]
